FAERS Safety Report 25113429 (Version 1)
Quarter: 2025Q1

REPORT INFORMATION
  Report Type: Spontaneous
  Country: CA (occurrence: CA)
  Receive Date: 20250324
  Receipt Date: 20250324
  Transmission Date: 20250408
  Serious: Yes (Other)
  Sender: PFIZER
  Company Number: CA-TAKEDA-2025TUS029295

PATIENT
  Age: 77 Year
  Sex: Female

DRUGS (13)
  1. PANTOPRAZOLE MAGNESIUM [Suspect]
     Active Substance: PANTOPRAZOLE MAGNESIUM
     Route: 065
  2. PANTOPRAZOLE [Suspect]
     Active Substance: PANTOPRAZOLE
     Route: 065
  3. ENTYVIO [Suspect]
     Active Substance: VEDOLIZUMAB
     Indication: Colitis ulcerative
     Route: 065
  4. EDARBYCLOR [Suspect]
     Active Substance: AZILSARTAN KAMEDOXOMIL\CHLORTHALIDONE
     Route: 065
  5. OMNARIS [Suspect]
     Active Substance: CICLESONIDE
     Route: 065
  6. ALOGLIPTIN BENZOATE\METFORMIN HYDROCHLORIDE [Suspect]
     Active Substance: ALOGLIPTIN BENZOATE\METFORMIN HYDROCHLORIDE
     Route: 065
  7. ROFLUMILAST [Suspect]
     Active Substance: ROFLUMILAST
     Route: 065
  8. DEXILANT [Suspect]
     Active Substance: DEXLANSOPRAZOLE
     Route: 065
  9. FEBUXOSTAT [Suspect]
     Active Substance: FEBUXOSTAT
     Route: 065
  10. ULORIC [Suspect]
     Active Substance: FEBUXOSTAT
     Route: 065
  11. ONDANSETRON [Suspect]
     Active Substance: ONDANSETRON
     Route: 065
  12. PIOGLITAZONE HYDROCHLORIDE [Suspect]
     Active Substance: PIOGLITAZONE HYDROCHLORIDE
     Route: 065
  13. FIBRINOGEN [Suspect]
     Active Substance: FIBRINOGEN HUMAN
     Route: 065

REACTIONS (3)
  - Disease recurrence [Recovered/Resolved]
  - Pneumonia [Recovered/Resolved]
  - Hypertension [Recovered/Resolved]
